FAERS Safety Report 8415610-4 (Version None)
Quarter: 2012Q2

REPORT INFORMATION
  Report Type: 
  Country: None (occurrence: None)
  Receive Date: 20120606
  Receipt Date: 20120528
  Transmission Date: 20120825
  Serious: Yes (Hospitalization)
  Sender: FDA-Public Use
  Company Number: CA-BRISTOL-MYERS SQUIBB COMPANY-16639619

PATIENT
  Age: 57 Year
  Sex: Female

DRUGS (13)
  1. PANTOPRAZOLE SODIUM [Concomitant]
  2. AMLODIPINE [Concomitant]
  3. VITAMIN B-12 [Concomitant]
  4. DIOVAN [Concomitant]
  5. EFFEXOR [Concomitant]
  6. GOLD SALTS [Concomitant]
     Dosage: INJECTIONS
  7. SYNTHROID [Concomitant]
  8. OXYCODONE HYDROCHLORIDE [Concomitant]
  9. ORENCIA [Suspect]
     Indication: RHEUMATOID ARTHRITIS
     Dosage: NO. OF INFUSIONS: 9. LAST DOSE: 28MAY12.
     Route: 042
     Dates: start: 20111115
  10. CELEBREX [Concomitant]
  11. CRESTOR [Concomitant]
  12. PREDNISONE [Concomitant]
     Dosage: 1 DF: 5MG + 4MG
  13. FOSAMAX [Concomitant]

REACTIONS (1)
  - OSTEOARTHRITIS [None]
